FAERS Safety Report 5079779-4 (Version None)
Quarter: 2006Q3

REPORT INFORMATION
  Report Type: 
  Country: None (occurrence: None)
  Receive Date: 20060808
  Receipt Date: 20060802
  Transmission Date: 20061208
  Serious: Yes (Death)
  Sender: FDA-Public Use
  Company Number: 146862USA

PATIENT
  Age: 32 Year
  Sex: Male

DRUGS (4)
  1. CLOZAPINE [Suspect]
  2. GEODON [Concomitant]
  3. RITALIN [Concomitant]
  4. WELLBUTRIN [Concomitant]

REACTIONS (1)
  - ROAD TRAFFIC ACCIDENT [None]
